FAERS Safety Report 8565370-1 (Version None)
Quarter: 2012Q3

REPORT INFORMATION
  Report Type: 
  Country: None (occurrence: None)
  Receive Date: 20120803
  Receipt Date: 20120731
  Transmission Date: 20120928
  Serious: Yes (Other)
  Sender: FDA-Public Use
  Company Number: US-ROCHE-1095207

PATIENT

DRUGS (2)
  1. COPEGUS [Suspect]
     Indication: HEPATITIS C
  2. PEGASYS [Suspect]
     Indication: HEPATITIS C

REACTIONS (2)
  - LIVER TRANSPLANT [None]
  - TREATMENT FAILURE [None]
